FAERS Safety Report 20668227 (Version 1)
Quarter: 2022Q2

REPORT INFORMATION
  Report Type: Spontaneous
  Country: GB (occurrence: GB)
  Receive Date: 20220404
  Receipt Date: 20220404
  Transmission Date: 20220721
  Serious: Yes (Death)
  Sender: FDA-Public Use
  Company Number: None

PATIENT
  Age: 64 Year
  Sex: Female

DRUGS (16)
  1. METHOTREXATE [Suspect]
     Active Substance: METHOTREXATE
     Indication: Non-Hodgkin^s lymphoma
     Dosage: UNIT DOSE ; 12.5 MG
     Route: 065
     Dates: end: 20080312
  2. METHOTREXATE [Suspect]
     Active Substance: METHOTREXATE
     Dosage: 37.5 MILLIGRAM DAILY;
     Route: 039
     Dates: start: 20080314, end: 20080518
  3. VINCRISTINE [Suspect]
     Active Substance: VINCRISTINE
     Indication: Diffuse large B-cell lymphoma
     Dosage: INDICATION LARGE B CELL LYMPHOMA OF KIDNEY
     Route: 065
     Dates: start: 20071219, end: 20080518
  4. DOXORUBICIN [Suspect]
     Active Substance: DOXORUBICIN
     Indication: Diffuse large B-cell lymphoma
     Dosage: INDICATION LARGE B CELL LYMPHOMA OF KIDNEY
     Route: 065
     Dates: start: 20071219, end: 20080518
  5. CYCLOPHOSPHAMIDE [Suspect]
     Active Substance: CYCLOPHOSPHAMIDE
     Indication: Diffuse large B-cell lymphoma
     Dosage: INDICATION LARGE B CELL LYMPHOMA OF KIDNEY
     Route: 065
     Dates: start: 20071219, end: 20080518
  6. PREDNISONE [Suspect]
     Active Substance: PREDNISONE
     Indication: Diffuse large B-cell lymphoma
     Dosage: INDICATION LARGE B CELL LYMPHOMA OF KIDNEY
     Route: 065
     Dates: start: 20071219, end: 20080518
  7. RITUXIMAB [Suspect]
     Active Substance: RITUXIMAB
     Indication: Diffuse large B-cell lymphoma
     Dosage: STRENGTH: 500MG AND 2X 100MG
     Route: 065
     Dates: start: 200803, end: 20080518
  8. RITUXIMAB [Suspect]
     Active Substance: RITUXIMAB
     Dosage: STRENGTH: 500MG AND 2X 100MG
     Route: 065
     Dates: start: 200812
  9. SULFAMETHOXAZOLE [Concomitant]
     Active Substance: SULFAMETHOXAZOLE
     Route: 065
  10. FLUCONAZOLE [Concomitant]
     Active Substance: FLUCONAZOLE
     Route: 065
  11. AMLODIPINE [Concomitant]
     Active Substance: AMLODIPINE BESYLATE
     Route: 065
  12. LEUCOVORIN [Concomitant]
     Active Substance: LEUCOVORIN
     Route: 065
  13. LANSOPRAZOLE [Concomitant]
     Active Substance: LANSOPRAZOLE
     Route: 065
  14. TRIMETHOPRIM [Concomitant]
     Active Substance: TRIMETHOPRIM
     Route: 065
  15. SIMVASTATIN [Concomitant]
     Active Substance: SIMVASTATIN
     Route: 065
  16. GANCICLOVIR [Concomitant]
     Active Substance: GANCICLOVIR
     Route: 065

REACTIONS (4)
  - Leukoencephalopathy [Fatal]
  - Ataxia [Not Recovered/Not Resolved]
  - Amnesia [Not Recovered/Not Resolved]
  - Apraxia [Not Recovered/Not Resolved]

NARRATIVE: CASE EVENT DATE: 20080501
